FAERS Safety Report 8623480-4 (Version None)
Quarter: 2012Q3

REPORT INFORMATION
  Report Type: 
  Country: None (occurrence: None)
  Receive Date: 20120827
  Receipt Date: 20120817
  Transmission Date: 20120928
  Serious: No
  Sender: FDA-Public Use
  Company Number: US-009507513-2012SP029635

PATIENT

DRUGS (4)
  1. ORGASULINE RAPIDE [Concomitant]
     Indication: PRODUCT USED FOR UNKNOWN INDICATION
  2. ANTIVIRAL (UNSPECIFIED) [Concomitant]
     Indication: PRODUCT USED FOR UNKNOWN INDICATION
  3. PEG-INTRON [Suspect]
     Indication: HEPATITIS C
     Dosage: 150 ?G, QW
     Dates: start: 20120516
  4. RIBAVIRIN [Suspect]
     Indication: PRODUCT USED FOR UNKNOWN INDICATION

REACTIONS (2)
  - IRRITABILITY [None]
  - FATIGUE [None]
